FAERS Safety Report 22521275 (Version 1)
Quarter: 2023Q2

REPORT INFORMATION
  Report Type: Spontaneous
  Country: US (occurrence: None)
  Receive Date: 20230602
  Receipt Date: 20230602
  Transmission Date: 20230722
  Serious: Yes (Hospitalization)
  Sender: FDA-Public Use
  Company Number: None

PATIENT
  Age: 78 Year
  Sex: Male

DRUGS (18)
  1. SPRYCEL [Suspect]
     Active Substance: DASATINIB
     Indication: Acute lymphocytic leukaemia
     Dosage: OTHER QUANTITY : 1T;?FREQUENCY : DAILY;?
     Route: 048
  2. ACYCLOVIR [Concomitant]
     Active Substance: ACYCLOVIR
  3. ALLOPURINOL [Concomitant]
     Active Substance: ALLOPURINOL
  4. LOSARTAN [Concomitant]
  5. METFORMIN [Concomitant]
  6. METOPROLOL [Concomitant]
  7. THERA [Concomitant]
  8. ONDANSETRON [Concomitant]
  9. PREDNISONE [Concomitant]
  10. DAILY MULTIPLE VITAMINS [Concomitant]
  11. DIFLUCAN [Concomitant]
  12. BACTRIM [Concomitant]
  13. DEVICE [Concomitant]
     Active Substance: DEVICE
  14. PEN NEEDLES [Concomitant]
  15. DEVICE [Concomitant]
     Active Substance: DEVICE
  16. AMOXICILLIN [Concomitant]
  17. ANUSOL HC OINT [Concomitant]
  18. PROCHLORPERAZINE [Concomitant]
     Active Substance: PROCHLORPERAZINE

REACTIONS (3)
  - Pneumonia [None]
  - Sepsis [None]
  - Therapy interrupted [None]

NARRATIVE: CASE EVENT DATE: 20230520
